FAERS Safety Report 4440794-2 (Version None)
Quarter: 2004Q3

REPORT INFORMATION
  Report Type: 
  Country: None (occurrence: None)
  Receive Date: 20040903
  Receipt Date: 20040614
  Transmission Date: 20050211
  Serious: Yes (Death)
  Sender: FDA-Public Use
  Company Number: FR-JNJFOC-20040603908

PATIENT
  Sex: Female
  Weight: 33 kg

DRUGS (5)
  1. REMINYL [Suspect]
     Route: 049
  2. REMINYL [Suspect]
     Route: 049
  3. REMINYL [Suspect]
     Route: 049
  4. DUPHALAC [Concomitant]
     Route: 049
  5. AMOXICILLIN [Concomitant]
     Route: 065

REACTIONS (2)
  - CLONIC CONVULSION [None]
  - GENERAL PHYSICAL HEALTH DETERIORATION [None]
